FAERS Safety Report 7231135-6 (Version None)
Quarter: 2011Q1

REPORT INFORMATION
  Report Type: 
  Country: None (occurrence: None)
  Receive Date: 20110107
  Receipt Date: 20101223
  Transmission Date: 20110831
  Serious: Yes (Other)
  Sender: FDA-Public Use
  Company Number: 2010MA005375

PATIENT
  Age: 47 Year
  Sex: Male

DRUGS (1)
  1. PROPRANOLOL HCL [Suspect]
     Indication: ANXIETY
     Dosage: 40 MG;QD
     Dates: start: 19940101

REACTIONS (2)
  - BLOOD CHOLESTEROL INCREASED [None]
  - BLOOD GLUCOSE INCREASED [None]
